FAERS Safety Report 6924583-2 (Version None)
Quarter: 2010Q3

REPORT INFORMATION
  Report Type: 
  Country: None (occurrence: None)
  Receive Date: 20100816
  Receipt Date: 20100806
  Transmission Date: 20110219
  Serious: Yes (Hospitalization)
  Sender: FDA-Public Use
  Company Number: BE-ELI_LILLY_AND_COMPANY-BE201007000711

PATIENT
  Sex: Female
  Weight: 66 kg

DRUGS (15)
  1. PEMETREXED [Suspect]
     Indication: NON-SMALL CELL LUNG CANCER STAGE III
     Dosage: 915 MG, EVERY 3 WEEKS
     Route: 042
     Dates: start: 20100510
  2. PEMETREXED [Suspect]
     Dosage: 495 MG, UNKNOWN
     Route: 042
     Dates: start: 20100621, end: 20100621
  3. CISPLATIN [Suspect]
     Indication: NON-SMALL CELL LUNG CANCER STAGE III
     Dosage: 137 MG, EVERY 3 WEEKS
     Route: 042
     Dates: start: 20100510
  4. CISPLATIN [Suspect]
     Dosage: 75 MG, UNKNOWN
     Route: 042
     Dates: start: 20100621, end: 20100621
  5. RADIATION [Suspect]
     Indication: NON-SMALL CELL LUNG CANCER STAGE III
     Dosage: 2 D/F, DAILY (1/D)
     Dates: start: 20100510, end: 20100623
  6. FOLIC ACID [Concomitant]
     Indication: PROPHYLAXIS
     Dosage: UNK, UNKNOWN
     Dates: start: 20100503
  7. VITAMIN B-12 [Concomitant]
     Indication: PROPHYLAXIS
     Dosage: UNK, UNKNOWN
     Route: 065
     Dates: start: 20100503
  8. MEDROL [Concomitant]
     Indication: PROPHYLAXIS
     Dosage: UNK, UNKNOWN
     Route: 065
     Dates: start: 20100503
  9. SERETIDE [Concomitant]
     Indication: ASTHMA
     Dosage: UNK, UNKNOWN
     Dates: start: 20000101
  10. PROPAFENONE HYDROCHLORIDE [Concomitant]
     Indication: TACHYCARDIA
     Dosage: UNK, UNKNOWN
     Dates: start: 20080801
  11. OMEPRAZOLE [Concomitant]
     Indication: HIATUS HERNIA
     Dosage: UNK, UNKNOWN
     Dates: start: 20080501
  12. ZOLPIDEM [Concomitant]
     Indication: INSOMNIA
     Dosage: UNK, UNKNOWN
     Dates: start: 20080501
  13. MOTILIUM [Concomitant]
     Indication: NAUSEA
     Dosage: UNK, UNKNOWN
     Route: 065
     Dates: start: 20080510
  14. LITICAN [Concomitant]
     Indication: NAUSEA
     Dates: start: 20080518
  15. DEXAMETHASONE [Concomitant]
     Indication: PROPHYLAXIS
     Dosage: UNK, UNKNOWN
     Dates: start: 20100503

REACTIONS (1)
  - NAUSEA [None]
